FAERS Safety Report 9935895 (Version 1)
Quarter: 2014Q1

REPORT INFORMATION
  Report Type: Spontaneous
  Country: US (occurrence: US)
  Receive Date: 20140228
  Receipt Date: 20140228
  Transmission Date: 20141002
  Serious: No
  Sender: FDA-Public Use
  Company Number: US-AMGEN-USASP2013073082

PATIENT
  Age: 25 Year
  Sex: Male

DRUGS (1)
  1. ENBREL [Suspect]
     Indication: ANKYLOSING SPONDYLITIS
     Dosage: 50 MG, QWK
     Route: 058
     Dates: start: 201308

REACTIONS (4)
  - Increased tendency to bruise [Unknown]
  - Photosensitivity reaction [Unknown]
  - Fatigue [Unknown]
  - Arthralgia [Unknown]
